FAERS Safety Report 7582322-9 (Version None)
Quarter: 2011Q2

REPORT INFORMATION
  Report Type: 
  Country: None (occurrence: None)
  Receive Date: 20110527
  Receipt Date: 20101007
  Transmission Date: 20111010
  Serious: Yes (Hospitalization, Other)
  Sender: FDA-Public Use
  Company Number: US200906005668

PATIENT
  Age: 59 Year
  Sex: Female
  Weight: 98.4 kg

DRUGS (28)
  1. EXENATIDE PEN, DISPOSABLE DEVICE (EXENATIDE PEN) PEN, DISPOSABLE [Concomitant]
  2. LISINOPRIL/HCTZ (HYDROCHLOROTHIAZIDE, LISINOPRIL) [Concomitant]
  3. CELEXA [Concomitant]
  4. LUNESTA [Concomitant]
  5. EFFEXOR XR [Concomitant]
  6. IRON (IRON) [Concomitant]
  7. GLUCOVANCE [Concomitant]
  8. SINGULAIR [Concomitant]
  9. VICODIN [Concomitant]
  10. ZANTAC [Concomitant]
  11. LASIX [Concomitant]
  12. XANAX [Concomitant]
  13. PAXIL [Concomitant]
  14. SENOKOT S (DOCUSATE SODIUM, SENNOSIDE A+B) [Concomitant]
  15. CYMBALTA [Concomitant]
  16. NOVOLOG [Concomitant]
  17. MICRO-K (POTASSIUM CHLORIDE) [Concomitant]
  18. LEVEMIR [Concomitant]
  19. AMBIEN [Concomitant]
  20. BIOTIN (BIOTIN) [Concomitant]
  21. ADVAIR DISKUS (FLUTICASONE PROPIONATE, SALMETEROL XINAFOATE) [Concomitant]
  22. ACIPHEX [Concomitant]
  23. REMICADE [Concomitant]
  24. BYETTA [Suspect]
     Indication: TYPE 2 DIABETES MELLITUS
     Dosage: 5 UG, 2/D, SUBCUTANEOUS, 10 UG, 2/D, SUBCUTANEOUS
     Route: 058
     Dates: start: 20060127, end: 20060522
  25. BYETTA [Suspect]
     Indication: TYPE 2 DIABETES MELLITUS
     Dosage: 5 UG, 2/D, SUBCUTANEOUS, 10 UG, 2/D, SUBCUTANEOUS
     Route: 058
     Dates: start: 20060522, end: 20080512
  26. IMURAN [Concomitant]
  27. ZESTRIL [Concomitant]
  28. SYNTHROID [Concomitant]

REACTIONS (7)
  - DRUG DOSE OMISSION [None]
  - PANCREATITIS ACUTE [None]
  - OFF LABEL USE [None]
  - ABDOMINAL DISTENSION [None]
  - NAUSEA [None]
  - RENAL INJURY [None]
  - ABDOMINAL PAIN [None]
